APPROVED DRUG PRODUCT: LISINOPRIL AND HYDROCHLOROTHIAZIDE
Active Ingredient: HYDROCHLOROTHIAZIDE; LISINOPRIL
Strength: 12.5MG;10MG
Dosage Form/Route: TABLET;ORAL
Application: A076194 | Product #003 | TE Code: AB
Applicant: WATSON LABS INC
Approved: Jul 1, 2002 | RLD: No | RS: No | Type: RX